FAERS Safety Report 9410833 (Version 3)
Quarter: 2013Q4

REPORT INFORMATION
  Report Type: Spontaneous
  Country: US (occurrence: US)
  Receive Date: 20130719
  Receipt Date: 20131219
  Transmission Date: 20140711
  Serious: No
  Sender: FDA-Public Use
  Company Number: US-009507513-1307USA009200

PATIENT
  Age: 48 Year
  Sex: Male

DRUGS (5)
  1. VICTRELIS [Suspect]
     Indication: HEPATITIS C
     Dosage: 4 CAPSULES BY MOUTH THREE TIMES A DAY WITH FOOD OR SNACK
     Route: 048
  2. PEGASYS [Suspect]
     Dosage: 180 MCG/M
  3. RIBAPAK [Suspect]
     Dosage: 1200/DAY
  4. LACTULOSE [Concomitant]
     Dosage: 20GM/30UNK
  5. ASCORBIC ACID [Concomitant]
     Dosage: 500 MG, TID

REACTIONS (11)
  - Lung disorder [Unknown]
  - Visual impairment [Unknown]
  - Influenza like illness [Unknown]
  - Erythema [Unknown]
  - Erythema [Unknown]
  - Headache [Unknown]
  - Headache [Unknown]
  - Cough [Unknown]
  - Rash [Unknown]
  - Rash generalised [Unknown]
  - Fatigue [Unknown]
